FAERS Safety Report 5931231-7 (Version None)
Quarter: 2008Q4

REPORT INFORMATION
  Report Type: 
  Country: None (occurrence: None)
  Receive Date: 20081023
  Receipt Date: 20080929
  Transmission Date: 20090506
  Serious: Yes (Hospitalization)
  Sender: FDA-Public Use
  Company Number: 001#0#2008-00560

PATIENT
  Age: 77 Year
  Sex: Female

DRUGS (4)
  1. ISOSORBIDE DINITRATE [Suspect]
     Dosage: 1200 MG (20 MG 1 IN 1 DAY (S)) ORAL
     Route: 048
  2. VALERIAN ROOT (VALERIAN ROOT) [Suspect]
     Dosage: 30 DF (1 DF 1 IN 1 DAY(S)) ORAL
     Route: 048
  3. DOXYLAMINE SUCCINATE [Suspect]
     Dosage: 250 MG (25 MG 1 IN 1 DAY(S)) ORAL
     Route: 048
  4. DIPHENHYDRAMINE HYDROCHLORIDE [Suspect]
     Dosage: 500 MG (25 MG 1 IN 1 DAY(S)) ORAL
     Route: 048

REACTIONS (4)
  - ABASIA [None]
  - HYPERTENSION [None]
  - MULTIPLE DRUG OVERDOSE INTENTIONAL [None]
  - SUICIDE ATTEMPT [None]
